FAERS Safety Report 6325985-8 (Version None)
Quarter: 2009Q3

REPORT INFORMATION
  Report Type: 
  Country: None (occurrence: None)
  Receive Date: 20090824
  Receipt Date: 20090819
  Transmission Date: 20100115
  Serious: Yes (Other)
  Sender: FDA-Public Use
  Company Number: MX-ELI_LILLY_AND_COMPANY-MX200908001819

PATIENT
  Age: 63 Year
  Sex: Male

DRUGS (6)
  1. ALIMTA [Suspect]
     Indication: PLEURAL MESOTHELIOMA MALIGNANT
     Dosage: 500 MG/M2, OTHER
     Route: 042
     Dates: start: 20090301, end: 20090801
  2. FOLIC ACID [Concomitant]
     Indication: SUPPLEMENTATION THERAPY
     Dosage: UNK, UNKNOWN
     Route: 065
  3. VITAMIN B-12 [Concomitant]
     Indication: SUPPLEMENTATION THERAPY
     Dosage: UNK, UNKNOWN
     Route: 065
  4. CISPLATIN [Concomitant]
     Dosage: UNK, UNKNOWN
     Route: 065
  5. TAXOTERE [Concomitant]
     Dosage: 145 MG/M2, UNKNOWN
     Route: 065
     Dates: start: 20090801
  6. CARBOPLATIN [Concomitant]
     Dosage: 570 MG/M2, UNKNOWN
     Route: 065
     Dates: start: 20090801

REACTIONS (1)
  - SYNCOPE [None]
